FAERS Safety Report 13828318 (Version 7)
Quarter: 2017Q4

REPORT INFORMATION
  Report Type: Report from Study
  Country: US (occurrence: US)
  Receive Date: 20170803
  Receipt Date: 20171011
  Transmission Date: 20180320
  Serious: No
  Sender: FDA-Public Use
  Company Number: US-PFIZER INC-2017328734

PATIENT
  Age: 66 Year
  Sex: Female
  Weight: 69.84 kg

DRUGS (15)
  1. ASPIRIN EC [Concomitant]
     Active Substance: ASPIRIN
     Dosage: 325 MG, AS NEEDED
     Route: 048
     Dates: start: 20151103
  2. FIBER [Concomitant]
     Active Substance: PSYLLIUM HUSK
     Dosage: 1 TABLET (DF), DAILY
     Dates: start: 20170418
  3. MECLIZINE HCL [Concomitant]
     Active Substance: MECLIZINE HYDROCHLORIDE
     Dosage: 1/2 TO 1 TABLET (DF), AS NEEDED (PRN)
     Dates: start: 20120131
  4. XANAX [Concomitant]
     Active Substance: ALPRAZOLAM
     Dosage: 1, 1/2 TAB DAILY (QD)
     Route: 048
     Dates: start: 20111118
  5. BENADRYL [Concomitant]
     Active Substance: DIPHENHYDRAMINE HYDROCHLORIDE
     Dosage: 25 MG, AS NEEDED
     Route: 048
     Dates: start: 20111118
  6. POTASSIUM CHLORIDE/RIBOFLAVIN SODIUM PHOSPHATE [Concomitant]
     Dosage: 20 MEQ, UNK
     Route: 048
     Dates: start: 20170712
  7. BYSTOLIC [Concomitant]
     Active Substance: NEBIVOLOL HYDROCHLORIDE
     Dosage: 5 MG, DAILY
     Route: 048
     Dates: start: 20170712
  8. DULOXETINE HCL [Concomitant]
     Active Substance: DULOXETINE HYDROCHLORIDE
     Dosage: 20 MG, DAILY
     Route: 048
     Dates: start: 20150903
  9. FENTANYL. [Concomitant]
     Active Substance: FENTANYL
     Dosage: 1 PATCH (DF), EVERY 72 HOURS
     Route: 062
     Dates: start: 20170712
  10. IBRANCE [Suspect]
     Active Substance: PALBOCICLIB
     Dosage: 125 MG, CYCLIC (1 CAPSULE DAILY FOR 21 DAYS AND THEN OFF FOR 7 DAYS)
     Route: 048
     Dates: start: 20170726
  11. ARIMIDEX [Concomitant]
     Active Substance: ANASTROZOLE
     Indication: BREAST CANCER
     Dosage: 1 MG, DAILY
     Route: 048
     Dates: start: 20120803
  12. IBUPROFEN. [Concomitant]
     Active Substance: IBUPROFEN
     Dosage: 2 TABLETS (DF), AS NEEDED
     Dates: start: 20170411
  13. TRETINOIN. [Concomitant]
     Active Substance: TRETINOIN
     Dosage: UNK, APPLY SPARINGLY TO AFFECTED AREAS ONCE DAILY
     Route: 061
     Dates: start: 20150312
  14. ZOLPIDEM TARTATE [Concomitant]
     Active Substance: ZOLPIDEM TARTRATE
     Dosage: 1 TABLET (DF), AT BEDTIME AS NEEDED (PRN)
     Route: 048
     Dates: start: 20110802
  15. IBRANCE [Suspect]
     Active Substance: PALBOCICLIB
     Indication: BREAST CANCER METASTATIC
     Dosage: 125 MG, CYCLIC[DAILY ON DAYS 1-21 EVERY 28 DAYS]
     Route: 048
     Dates: start: 20170713

REACTIONS (8)
  - Drug prescribing error [Unknown]
  - Nausea [Recovered/Resolved]
  - Feeling abnormal [Unknown]
  - Myalgia [Unknown]
  - Pruritus [Unknown]
  - Weight decreased [Unknown]
  - Fatigue [Unknown]
  - White blood cell count decreased [Unknown]

NARRATIVE: CASE EVENT DATE: 2017
